FAERS Safety Report 13070192 (Version 2)
Quarter: 2017Q1

REPORT INFORMATION
  Report Type: Spontaneous
  Country: CN (occurrence: CN)
  Receive Date: 20161228
  Receipt Date: 20170113
  Transmission Date: 20170428
  Serious: Yes (Other)
  Sender: FDA-Public Use
  Company Number: ALCN2016CN009710

PATIENT

DRUGS (1)
  1. BSS [Suspect]
     Active Substance: CALCIUM CHLORIDE\MAGNESIUM CHLORIDE\POTASSIUM CHLORIDE\SODIUM ACETATE\SODIUM CHLORIDE\SODIUM CITRATE
     Indication: POSTOPERATIVE CARE
     Dosage: UNK
     Route: 031

REACTIONS (1)
  - Flat anterior chamber of eye [Recovered/Resolved]
